FAERS Safety Report 5989109-9 (Version None)
Quarter: 2008Q4

REPORT INFORMATION
  Report Type: 
  Country: None (occurrence: None)
  Receive Date: 20081210
  Receipt Date: 20081204
  Transmission Date: 20090506
  Serious: Yes (Other)
  Sender: FDA-Public Use
  Company Number: JP-JNJFOC-20081101555

PATIENT
  Age: 51 Year
  Sex: Male
  Weight: 68.35 kg

DRUGS (5)
  1. ITRIZOLE [Suspect]
     Indication: ANTIFUNGAL PROPHYLAXIS
     Route: 048
  2. ONCOVIN [Interacting]
     Indication: ACUTE LYMPHOCYTIC LEUKAEMIA
     Route: 041
  3. CYCLOPHOSPHAMIDE [Concomitant]
     Indication: ACUTE LYMPHOCYTIC LEUKAEMIA
     Route: 041
  4. CALCIUM L-ASPARTATE [Concomitant]
     Indication: ACUTE LYMPHOCYTIC LEUKAEMIA
     Dosage: 6000 IU/M2
     Route: 041
  5. PREDNISOLONE [Concomitant]
     Indication: ACUTE LYMPHOCYTIC LEUKAEMIA
     Route: 041

REACTIONS (7)
  - CONSTIPATION [None]
  - DRUG INTERACTION [None]
  - HYPOAESTHESIA [None]
  - HYPONATRAEMIA [None]
  - HYPOURICAEMIA [None]
  - LIVER DISORDER [None]
  - MALAISE [None]
